FAERS Safety Report 6973405-2 (Version None)
Quarter: 2010Q3

REPORT INFORMATION
  Report Type: 
  Country: None (occurrence: None)
  Receive Date: 20100909
  Receipt Date: 20100830
  Transmission Date: 20110219
  Serious: Yes (Disabling)
  Sender: FDA-Public Use
  Company Number: NL-CELGENEUS-114-21880-10082905

PATIENT
  Sex: Male
  Weight: 100 kg

DRUGS (1)
  1. REVLIMID [Suspect]
     Route: 048
     Dates: start: 20100812

REACTIONS (1)
  - PSORIASIS [None]
